FAERS Safety Report 4480885-3 (Version None)
Quarter: 2004Q4

REPORT INFORMATION
  Report Type: 
  Country: None (occurrence: None)
  Receive Date: 20041020
  Receipt Date: 20041020
  Transmission Date: 20050328
  Serious: Yes (Hospitalization)
  Sender: FDA-Public Use
  Company Number: None

PATIENT
  Age: 58 Year
  Sex: Female

DRUGS (6)
  1. ANCEF [Suspect]
     Indication: POSTOPERATIVE CARE
     Dosage: 1 G IV Q 8 HOURS
     Route: 042
     Dates: start: 20040907, end: 20040909
  2. ANCEF [Suspect]
     Indication: PROPHYLAXIS
     Dosage: 1 G IV Q 8 HOURS
     Route: 042
     Dates: start: 20040907, end: 20040909
  3. ANCEF [Suspect]
     Indication: POSTOPERATIVE CARE
     Dosage: 1 G IV Q 8 HOURS
     Route: 042
     Dates: start: 20040911, end: 20040911
  4. ANCEF [Suspect]
     Indication: PROPHYLAXIS
     Dosage: 1 G IV Q 8 HOURS
     Route: 042
     Dates: start: 20040911, end: 20040911
  5. HYDROCHLOROTHIAZIDE [Concomitant]
  6. VENLAFAXINE HCL [Concomitant]

REACTIONS (2)
  - ERYTHEMA MULTIFORME [None]
  - RASH PRURITIC [None]
